FAERS Safety Report 4932783-6 (Version None)
Quarter: 2006Q1

REPORT INFORMATION
  Report Type: 
  Country: None (occurrence: None)
  Receive Date: 20060306
  Receipt Date: 20051205
  Transmission Date: 20060701
  Serious: Yes (Hospitalization)
  Sender: FDA-Public Use
  Company Number: US-BOEHRINGER INGELHEIM PHARMACEUTICALS, INC.-2005-BP-21020BP

PATIENT
  Sex: Female

DRUGS (5)
  1. MIRAPEX [Suspect]
     Indication: RESTLESS LEGS SYNDROME
     Route: 048
     Dates: start: 20010101, end: 20051001
  2. MIRAPEX [Suspect]
     Route: 048
     Dates: start: 20051001, end: 20051001
  3. PAXIL [Concomitant]
     Route: 048
  4. TRASADONE [Concomitant]
     Route: 048
  5. WELLBUTRIN [Concomitant]
     Route: 048

REACTIONS (3)
  - DEPRESSION SUICIDAL [None]
  - GAMBLING [None]
  - OBSESSIVE-COMPULSIVE DISORDER [None]
